FAERS Safety Report 10234334 (Version 2)
Quarter: 2014Q2

REPORT INFORMATION
  Report Type: Spontaneous
  Country: US (occurrence: US)
  Receive Date: 20140612
  Receipt Date: 20140612
  Transmission Date: 20141212
  Serious: Yes (Death)
  Sender: FDA-Public Use
  Company Number: US-EXELIXIS-CABO-13003611

PATIENT
  Age: 75 Year
  Sex: Male
  Weight: 95.24 kg

DRUGS (1)
  1. COMETRIQ [Suspect]
     Indication: PROSTATE CANCER
     Dosage: 140 MG, QD
     Route: 048
     Dates: start: 20131029, end: 201403

REACTIONS (4)
  - Malignant neoplasm progression [Fatal]
  - Cough [Unknown]
  - Fatigue [Unknown]
  - Off label use [Unknown]
